FAERS Safety Report 8518570-0 (Version None)
Quarter: 2012Q3

REPORT INFORMATION
  Report Type: 
  Country: None (occurrence: None)
  Receive Date: 20120718
  Receipt Date: 20120531
  Transmission Date: 20120928
  Serious: No
  Sender: FDA-Public Use
  Company Number: US-BRISTOL-MYERS SQUIBB COMPANY-16620130

PATIENT
  Sex: Male

DRUGS (2)
  1. COUMADIN [Suspect]
     Indication: THROMBOSIS
     Dosage: 5MG-4APR12-UNK 7.5MG-2012-2012 10MG-2012-ONG
     Dates: start: 20120406
  2. LOVENOX [Suspect]
     Indication: THROMBOSIS
     Dates: start: 20120406

REACTIONS (1)
  - CHROMATURIA [None]
